FAERS Safety Report 8141761 (Version 6)
Quarter: 2012Q4

REPORT INFORMATION
  Report Type: Spontaneous
  Country: US (occurrence: None)
  Receive Date: 20110902
  Receipt Date: 20120827
  Transmission Date: 20130627
  Serious: Yes (Other)
  Sender: FDA-Public Use
  Company Number: CIP11002115

PATIENT
  Age: 64 Year
  Sex: Female

DRUGS (25)
  1. ACTONEL [Suspect]
     Indication: OSTEOPOROSIS
     Dosage: 150 MG ONCE MONTHLY, ORAL
     Route: 048
     Dates: start: 20090306, end: 20100726
  2. ACTONEL [Suspect]
     Indication: OSTEOPOROSIS
     Dosage: 35 MG ONCE WEEKLY, ORAL
     Route: 048
     Dates: start: 20041113, end: 20090103
  3. FOSAMAX [Suspect]
     Indication: OSTEOPOROSIS
     Dosage: 10 MG ORAL, 70 MG ONCE WEEKLY, ORAL
     Route: 048
     Dates: start: 19990701, end: 20010715
  4. FOSAMAX [Suspect]
     Indication: OSTEOPOROSIS
     Dosage: 10 MG ORAL, 70 MG ONCE WEEKLY, ORAL
     Route: 048
     Dates: start: 20010715, end: 20041113
  5. CALCIUM CARBONATE [Concomitant]
  6. ERGOCALCIFEROL [Concomitant]
  7. NEXIUM [Concomitant]
  8. VITAMIN C /00008001/ (ASCORBIC ACID) [Concomitant]
  9. NIACIN [Concomitant]
  10. VITAMIN E /00110501/ (TOCOPHEROL) [Concomitant]
  11. MULTIVITAMINS (ASCORBIC ACID, ERGOCALCIFEROL, FOLIC ACID, NICOTINAMIDE, PANTHENOL, RETINOL, RIBOFLAV [Concomitant]
  12. SKELAXIN /00611501/ (METAXALONE) [Concomitant]
  13. DOXYCYCLINE [Concomitant]
  14. METAMUCIL /00091301/ (PSYLLIUM HYDROPHILIC MUCILLOID) [Concomitant]
  15. ERYTHROMYCIN [Concomitant]
  16. LORATADINE [Concomitant]
  17. ZITHROMAX [Concomitant]
  18. AMOXICILLIN [Concomitant]
  19. FLUTICASONE /00972202/ (FLUTICASONE PROPIONATE) [Concomitant]
  20. PRILOSEC [Concomitant]
  21. PROTONIX [Concomitant]
  22. OS-CAL /00188401/ (CALCIUM, ERGOCALCIFEROL) [Concomitant]
  23. MIRALAX /00754501/ (MACROGOL) [Concomitant]
  24. THERAGRAN-M /00610701/ (MINERALS NOS, VITAMINS NOS) [Concomitant]
  25. ADVIL /00109201/ (IBUPROFEN) [Concomitant]

REACTIONS (17)
  - Stress fracture [None]
  - Pathological fracture [None]
  - Femur fracture [None]
  - Pain in extremity [None]
  - Fall [None]
  - Weight bearing difficulty [None]
  - Gait disturbance [None]
  - Contusion [None]
  - Musculoskeletal discomfort [None]
  - Low turnover osteopathy [None]
  - Bone disorder [None]
  - Osteogenesis imperfecta [None]
  - Fracture nonunion [None]
  - Abdominal discomfort [None]
  - Gastric ulcer [None]
  - Bone marrow oedema [None]
  - Confusional state [None]
